FAERS Safety Report 5866658-5 (Version None)
Quarter: 2008Q3

REPORT INFORMATION
  Report Type: 
  Country: None (occurrence: None)
  Receive Date: 20080902
  Receipt Date: 20080820
  Transmission Date: 20090109
  Serious: Yes (Death, Hospitalization)
  Sender: FDA-Public Use
  Company Number: US-AMGEN-US275910

PATIENT
  Sex: Male
  Weight: 97.6 kg

DRUGS (21)
  1. PROCRIT [Suspect]
     Indication: RENAL FAILURE CHRONIC
     Route: 065
     Dates: start: 20060101
  2. ALLOPURINOL [Concomitant]
     Route: 048
  3. ASPIRIN [Concomitant]
     Route: 048
  4. CADUET [Concomitant]
     Route: 048
  5. BACTRIM DS [Concomitant]
     Route: 048
  6. COREG [Concomitant]
     Route: 048
  7. COLCHICINE [Concomitant]
     Route: 048
  8. DEXAMETHASONE TAB [Concomitant]
     Route: 048
  9. FERROUS SULFATE TAB [Concomitant]
     Route: 048
  10. FLAGYL [Concomitant]
     Route: 048
  11. FOLIC ACID [Concomitant]
  12. GANCICLOVIR [Concomitant]
     Route: 048
  13. HYDRALAZINE HCL [Concomitant]
     Route: 048
  14. ISORBID [Concomitant]
     Route: 048
  15. PREVACID [Concomitant]
     Route: 048
  16. MAGNESIUM OXIDE [Concomitant]
     Route: 048
  17. NOVOLOG [Concomitant]
     Route: 058
  18. PHOSLO [Concomitant]
     Route: 048
  19. PROGRAF [Concomitant]
     Route: 048
  20. RAPAMUNE [Concomitant]
     Route: 048
  21. SENNA [Concomitant]
     Route: 048

REACTIONS (9)
  - ASTHENIA [None]
  - CARDIAC ARREST [None]
  - CARDIAC FAILURE CONGESTIVE [None]
  - DIZZINESS [None]
  - GOUT [None]
  - HEART TRANSPLANT REJECTION [None]
  - MEDICATION ERROR [None]
  - RENAL FAILURE ACUTE [None]
  - VOMITING [None]
